FAERS Safety Report 5859123-2 (Version None)
Quarter: 2008Q3

REPORT INFORMATION
  Report Type: 
  Country: None (occurrence: None)
  Receive Date: 20080827
  Receipt Date: 20080822
  Transmission Date: 20090109
  Serious: Yes (Other)
  Sender: FDA-Public Use
  Company Number: PHHY2008JP18922

PATIENT

DRUGS (1)
  1. PARLODEL [Suspect]
     Route: 048

REACTIONS (2)
  - BLOOD PRESSURE DECREASED [None]
  - SHOCK [None]
